FAERS Safety Report 7340508-2 (Version None)
Quarter: 2011Q1

REPORT INFORMATION
  Report Type: 
  Country: None (occurrence: None)
  Receive Date: 20110309
  Receipt Date: 20110222
  Transmission Date: 20110831
  Serious: Yes (Other)
  Sender: FDA-Public Use
  Company Number: PHHY2011US17689

PATIENT
  Age: 68 Year
  Sex: Female

DRUGS (3)
  1. ENABLEX [Suspect]
     Dosage: 15 MG, DAILY
     Route: 048
     Dates: start: 20101201
  2. METFORMIN [Concomitant]
     Dosage: UNK
  3. ANTIHYPERTENSIVES [Concomitant]
     Dosage: UNK

REACTIONS (2)
  - DYSURIA [None]
  - CYSTITIS [None]
